FAERS Safety Report 25723954 (Version 1)
Quarter: 2025Q3

REPORT INFORMATION
  Report Type: Spontaneous
  Country: US (occurrence: US)
  Receive Date: 20250825
  Receipt Date: 20250825
  Transmission Date: 20251021
  Serious: No
  Sender: CIPLA
  Company Number: US-CIPLA LTD.-2025US10374

PATIENT

DRUGS (1)
  1. LENALIDOMIDE [Suspect]
     Active Substance: LENALIDOMIDE
     Indication: Plasma cell myeloma
     Dosage: 10 MILLIGRAM, QD (28/28)
     Route: 048
     Dates: start: 20250801

REACTIONS (2)
  - Diarrhoea [Recovering/Resolving]
  - Rash [Recovering/Resolving]

NARRATIVE: CASE EVENT DATE: 20250801
